FAERS Safety Report 8940156 (Version 2)
Quarter: 2013Q3

REPORT INFORMATION
  Report Type: Report from Study
  Country: ES (occurrence: ES)
  Receive Date: 20121130
  Receipt Date: 20130729
  Transmission Date: 20140515
  Serious: Yes (Other)
  Sender: FDA-Public Use
  Company Number: ES-ABBOTT-12P-144-1011843-00

PATIENT
  Age: 29 Year
  Sex: Male

DRUGS (7)
  1. HUMIRA [Suspect]
     Indication: CROHN^S DISEASE
     Dosage: BASELINE
     Route: 058
     Dates: start: 20080912, end: 20080912
  2. HUMIRA [Suspect]
     Dosage: WEEK 2
     Route: 058
  3. HUMIRA [Suspect]
     Dosage: WEEK TWO
     Route: 058
  4. HUMIRA [Suspect]
     Route: 058
  5. HUMIRA [Suspect]
     Route: 058
     Dates: start: 20090212, end: 20090611
  6. AZATHIOPRINE [Concomitant]
     Indication: CROHN^S DISEASE
     Dates: start: 19980901
  7. PREDNISONE [Concomitant]
     Indication: CROHN^S DISEASE

REACTIONS (2)
  - Fistula discharge [Recovered/Resolved]
  - Abscess [Recovered/Resolved]
